FAERS Safety Report 6671575-7 (Version None)
Quarter: 2010Q2

REPORT INFORMATION
  Report Type: 
  Country: None (occurrence: None)
  Receive Date: 20100406
  Receipt Date: 20100406
  Transmission Date: 20101027
  Serious: No
  Sender: FDA-Public Use
  Company Number: None

PATIENT
  Age: 64 Year
  Sex: Male
  Weight: 95 kg

DRUGS (1)
  1. CLINDAMYCIN HCL [Suspect]
     Indication: POST PROCEDURAL INFECTION
     Dosage: 150MG CAPSULE 1 EVERY 6HRS BY MOUTH
     Dates: start: 20100331, end: 20100404

REACTIONS (7)
  - BLOOD PRESSURE INCREASED [None]
  - HEADACHE [None]
  - INFLAMMATION [None]
  - INFLUENZA [None]
  - POSTNASAL DRIP [None]
  - RHINORRHOEA [None]
  - SINUS DISORDER [None]
